FAERS Safety Report 9322542 (Version 1)
Quarter: 2013Q2

REPORT INFORMATION
  Report Type: Spontaneous
  Country: US (occurrence: US)
  Receive Date: 20130531
  Receipt Date: 20130531
  Transmission Date: 20140414
  Serious: Yes (Other)
  Sender: FDA-Public Use
  Company Number: AF-ASTRAZENECA-2013SE36524

PATIENT
  Age: 13 Year
  Sex: Female

DRUGS (3)
  1. NEXIUM [Suspect]
     Route: 048
  2. PRILOSEC [Suspect]
     Route: 048
  3. SEZIURE MEDICATION [Concomitant]

REACTIONS (5)
  - Gastrointestinal disorder [Unknown]
  - Convulsion [Unknown]
  - Impaired gastric emptying [Unknown]
  - Vomiting [Not Recovered/Not Resolved]
  - Nausea [Not Recovered/Not Resolved]
